FAERS Safety Report 9819854 (Version 1)
Quarter: 2013Q1

REPORT INFORMATION
  Report Type: Spontaneous
  Country: US (occurrence: None)
  Receive Date: 20130107
  Receipt Date: 20130107
  Transmission Date: 20140127
  Serious: No
  Sender: FDA-Public Use
  Company Number: PHEH2012US019021

PATIENT
  Sex: Male
  Weight: 82.1 kg

DRUGS (18)
  1. GILENYA (FTY) CAPSULE, 0.5MG [Suspect]
     Route: 048
  2. VIAGRA (SILDENAFIL CITRATE) TABLET, 25 MG [Concomitant]
  3. NEXIUM (ESOMEPRAZOLE MAGNESIUM) CAPSULE, 40 MG [Concomitant]
  4. MISOPROSTOL (MISOPROSTOL) TABLET, 200 UG [Concomitant]
  5. TOPAMAX (TOPIRAMATE) TABLET, 200 MG [Concomitant]
  6. ZINC (ZINC) CAPSULE, 30 MG [Concomitant]
  7. TAMSULOSIN (TAMSULOSIN) CAPSULE, 0.4 MG [Concomitant]
  8. NASONEX (MOMETASONE FUROATE() SPRAY [Concomitant]
  9. CHLORPHEN (CHLORAMPHENICOL) TABLET, 4 MG [Concomitant]
  10. L-CARNITINE (LEVOCARNITINE) CAPSULE, 250 MG [Concomitant]
  11. CYMBALTA (DULOXETINE HYDROCHLORIDE) CAPSULE, 20 MG [Concomitant]
  12. MULTIMAX TABLET [Concomitant]
  13. GERITOL COMPLETE (FOLIC ACID, IRON, MINERALS NOS, VITAMINS NOS) TABLET [Concomitant]
  14. NIACIN (NICOTINIC ACID) CAPSULE, 400 MG [Concomitant]
  15. CIALIS (TADALAFIL) TABLET, 20 MG [Concomitant]
  16. PROVIGIL (MODAFINIL) TABLET, 200 MG [Concomitant]
  17. VITAMIN D3 (COLECALCIFEROL) CAPSULE, 2000 U [Concomitant]
  18. VITAMIN B12 (CYANOCOBALAMIN) TABLET [Concomitant]

REACTIONS (2)
  - Memory impairment [None]
  - Hypoaesthesia [None]
